FAERS Safety Report 7590238-7 (Version None)
Quarter: 2011Q3

REPORT INFORMATION
  Report Type: 
  Country: None (occurrence: None)
  Receive Date: 20110705
  Receipt Date: 20110628
  Transmission Date: 20111222
  Serious: Yes (Other)
  Sender: FDA-Public Use
  Company Number: US-ACTELION-A-US2011-50671

PATIENT

DRUGS (2)
  1. TRACLEER [Suspect]
     Indication: PULMONARY HYPERTENSION
     Dosage: UNK
     Route: 048
     Dates: start: 20080324, end: 20110601
  2. COUMADIN [Concomitant]

REACTIONS (4)
  - HEPATIC MASS [None]
  - COLON CANCER METASTATIC [None]
  - HEPATIC NEOPLASM [None]
  - BIOPSY LIVER [None]
